FAERS Safety Report 5065405-7 (Version None)
Quarter: 2006Q3

REPORT INFORMATION
  Report Type: 
  Country: None (occurrence: None)
  Receive Date: 20060731
  Receipt Date: 20060725
  Transmission Date: 20061208
  Serious: Yes (Hospitalization)
  Sender: FDA-Public Use
  Company Number: FR-AVENTIS-200612634FR

PATIENT
  Age: 83 Year
  Sex: Male
  Weight: 60 kg

DRUGS (10)
  1. LOVENOX [Suspect]
     Route: 058
     Dates: start: 20060614, end: 20060630
  2. APROVEL [Concomitant]
     Indication: ESSENTIAL HYPERTENSION
     Route: 048
  3. FLUDEX - SLOW RELEASE [Concomitant]
     Indication: ESSENTIAL HYPERTENSION
     Route: 048
  4. LIBRAX [Concomitant]
     Route: 048
  5. SPASFON [Concomitant]
     Route: 048
  6. TRIMEBUTINE [Concomitant]
     Route: 048
  7. LANZOR [Concomitant]
     Route: 048
  8. TEMESTA [Concomitant]
     Route: 048
  9. ISKEDYL FORT [Concomitant]
     Route: 048
  10. MOTILIUM [Concomitant]
     Route: 048

REACTIONS (1)
  - THROMBOCYTHAEMIA [None]
